FAERS Safety Report 22243468 (Version 2)
Quarter: 2023Q2

REPORT INFORMATION
  Report Type: Spontaneous
  Country: DE (occurrence: DE)
  Receive Date: 20230424
  Receipt Date: 20230505
  Transmission Date: 20230721
  Serious: Yes (Death, Hospitalization, Other)
  Sender: FDA-Public Use
  Company Number: DE-BoehringerIngelheim-2023-BI-230617

PATIENT
  Age: 72 Year
  Sex: Female
  Weight: 46 kg

DRUGS (2)
  1. DOCETAXEL [Suspect]
     Active Substance: DOCETAXEL
     Indication: Lung adenocarcinoma
     Dosage: 60 MILLIGRAM/SQ. METER, ONCE A DAY
     Route: 042
     Dates: start: 20221103
  2. NINTEDANIB [Suspect]
     Active Substance: NINTEDANIB
     Indication: Lung adenocarcinoma
     Dosage: 200 MILLIGRAM, TWO TIMES A DAY
     Route: 048
     Dates: start: 20221104

REACTIONS (5)
  - Pneumonia [Fatal]
  - Dyspnoea [Fatal]
  - Dry skin [Recovered/Resolved]
  - Pain in extremity [Recovered/Resolved]
  - Epistaxis [Recovered/Resolved]

NARRATIVE: CASE EVENT DATE: 20221208
